FAERS Safety Report 22390890 (Version 10)
Quarter: 2023Q4

REPORT INFORMATION
  Report Type: Spontaneous
  Country: CA (occurrence: CA)
  Receive Date: 20230601
  Receipt Date: 20231123
  Transmission Date: 20240110
  Serious: Yes (Hospitalization, Other)
  Sender: FDA-Public Use
  Company Number: CA-CELLTRION INC.-2023CA011211

PATIENT

DRUGS (7)
  1. INFLECTRA [Suspect]
     Active Substance: INFLIXIMAB-DYYB
     Indication: Colitis ulcerative
     Dosage: 500 MG, DOSE AT HOSPITAL
     Route: 042
     Dates: start: 20230515
  2. INFLECTRA [Suspect]
     Active Substance: INFLIXIMAB-DYYB
     Dosage: 500 MG, DOSE AT HOSPITAL
     Route: 042
     Dates: start: 20230518
  3. INFLECTRA [Suspect]
     Active Substance: INFLIXIMAB-DYYB
     Dosage: 400 MG, Q 2,6 WEEKS THEN EVERY 8 WEEKS
     Route: 042
     Dates: start: 20230526
  4. INFLECTRA [Suspect]
     Active Substance: INFLIXIMAB-DYYB
     Dosage: 400 MG, WEEK 6 DOSE (0, 2,6 WEEKS THEN EVERY 8 WEEKS)
     Route: 042
     Dates: start: 20230622, end: 20230622
  5. INFLECTRA [Suspect]
     Active Substance: INFLIXIMAB-DYYB
     Dosage: 400 MG, Q 2,6 WEEKS THEN EVERY 8 WEEKS
     Route: 042
     Dates: start: 20230818
  6. INFLECTRA [Suspect]
     Active Substance: INFLIXIMAB-DYYB
     Dosage: 600 MG, EVERY 7 WEEKS
     Route: 042
     Dates: start: 20230928
  7. PREDNISONE [Concomitant]
     Active Substance: PREDNISONE
     Dosage: WEANING OFF OF PREDNISONE 5 MORE WEEKS

REACTIONS (19)
  - Condition aggravated [Not Recovered/Not Resolved]
  - Abscess [Unknown]
  - Drug ineffective [Unknown]
  - Drug level decreased [Unknown]
  - Weight increased [Not Recovered/Not Resolved]
  - Muscular weakness [Unknown]
  - Weight decreased [Unknown]
  - Alopecia [Not Recovered/Not Resolved]
  - Anxiety [Not Recovered/Not Resolved]
  - Nausea [Unknown]
  - Fatigue [Unknown]
  - Chills [Unknown]
  - Hypophagia [Unknown]
  - Pyrexia [Unknown]
  - Tremor [Unknown]
  - Off label use [Unknown]
  - Off label use [Unknown]
  - Off label use [Unknown]
  - Intentional product use issue [Unknown]

NARRATIVE: CASE EVENT DATE: 20230101
